FAERS Safety Report 21518991 (Version 1)
Quarter: 2022Q4

REPORT INFORMATION
  Report Type: Report from Study
  Country: CN (occurrence: CN)
  Receive Date: 20221028
  Receipt Date: 20221028
  Transmission Date: 20230113
  Serious: Yes (Other)
  Sender: FDA-Public Use
  Company Number: CN-BRISTOL-MYERS SQUIBB COMPANY-BMS-2021-089528

PATIENT
  Age: 68 Year
  Sex: Female

DRUGS (1)
  1. OPDIVO [Suspect]
     Active Substance: NIVOLUMAB
     Indication: Squamous cell carcinoma of head and neck
     Route: 041
     Dates: start: 20201215

REACTIONS (6)
  - Dyskinesia [Unknown]
  - Visual impairment [Unknown]
  - Haemoglobin decreased [Unknown]
  - Asthenia [Unknown]
  - Off label use [Unknown]
  - Optic nerve compression [Unknown]
